FAERS Safety Report 7399585-5 (Version None)
Quarter: 2011Q2

REPORT INFORMATION
  Report Type: 
  Country: None (occurrence: None)
  Receive Date: 20110407
  Receipt Date: 20101007
  Transmission Date: 20111010
  Serious: Yes (Hospitalization, Other)
  Sender: FDA-Public Use
  Company Number: US-BAYER-201015558NA

PATIENT
  Sex: Female
  Weight: 108.84 kg

DRUGS (3)
  1. YASMIN [Suspect]
     Indication: MENSTRUAL CYCLE MANAGEMENT
     Dosage: UNK UNK, UNK
     Route: 048
     Dates: start: 20050101, end: 20070101
  2. YASMIN [Suspect]
     Dosage: UNK
     Dates: start: 20071201, end: 20080701
  3. YAZ [Suspect]
     Indication: MENSTRUAL CYCLE MANAGEMENT
     Dosage: UNK UNK, UNK
     Route: 048
     Dates: start: 20070101, end: 20071201

REACTIONS (10)
  - CHOLECYSTITIS [None]
  - CHOLESTEROSIS [None]
  - BACK PAIN [None]
  - GASTROOESOPHAGEAL REFLUX DISEASE [None]
  - DYSPEPSIA [None]
  - GALLBLADDER DISORDER [None]
  - VOMITING [None]
  - ABDOMINAL PAIN UPPER [None]
  - NAUSEA [None]
  - CHEST PAIN [None]
